FAERS Safety Report 7394961-9 (Version None)
Quarter: 2011Q1

REPORT INFORMATION
  Report Type: 
  Country: None (occurrence: None)
  Receive Date: 20110324
  Receipt Date: 20110314
  Transmission Date: 20110831
  Serious: Yes (Hospitalization)
  Sender: FDA-Public Use
  Company Number: DSA_45179_2011

PATIENT
  Sex: Female

DRUGS (4)
  1. LASIX [Concomitant]
  2. MONO-TILDIEM (MONO-TILDIEM LP - DILTIAZEM HYDROCHLORIDE) 300 MG (NOT S [Suspect]
     Indication: PRODUCT USED FOR UNKNOWN INDICATION
     Dosage: 300 MG, FREQUENCY UNKNOWN, ORAL
     Route: 048
     Dates: start: 20100901
  3. ANGIOTENSIN II [Concomitant]
  4. LERCAN [Concomitant]

REACTIONS (4)
  - GENERAL PHYSICAL HEALTH DETERIORATION [None]
  - HYPERTENSION [None]
  - ASTHENIA [None]
  - CONDITION AGGRAVATED [None]
